FAERS Safety Report 24075431 (Version 3)
Quarter: 2024Q3

REPORT INFORMATION
  Report Type: Spontaneous
  Country: US (occurrence: US)
  Receive Date: 20240710
  Receipt Date: 20240717
  Transmission Date: 20241017
  Serious: Yes (Hospitalization, Disabling, Other)
  Sender: PFIZER
  Company Number: US-MLMSERVICE-20240628-PI116687-00072-1

PATIENT
  Age: 38 Year
  Sex: Female
  Weight: 63.5 kg

DRUGS (3)
  1. FENTANYL CITRATE [Suspect]
     Active Substance: FENTANYL CITRATE
     Indication: Spinal anaesthesia
     Dosage: SINGLE-SHOT WITH 25-GAUGE PENCIL-TIP NEEDLE
     Route: 008
  2. BUPIVACAINE HYDROCHLORIDE [Suspect]
     Active Substance: BUPIVACAINE HYDROCHLORIDE
     Indication: Spinal anaesthesia
     Dosage: SINGLE-SHOT WITH 25-GAUGE PENCIL-TIP NEEDLE
     Route: 008
  3. MORPHINE SULFATE [Suspect]
     Active Substance: MORPHINE SULFATE
     Indication: Spinal anaesthesia
     Dosage: SINGLE-SHOT WITH 25-GAUGE PENCIL-TIP NEEDLE
     Route: 008

REACTIONS (2)
  - Spinal cord infarction [Recovering/Resolving]
  - Anterior spinal artery syndrome [Recovering/Resolving]
